FAERS Safety Report 5386285-6 (Version None)
Quarter: 2007Q3

REPORT INFORMATION
  Report Type: 
  Country: None (occurrence: None)
  Receive Date: 20070710
  Receipt Date: 20070710
  Transmission Date: 20080115
  Serious: Yes (Hospitalization)
  Sender: FDA-Public Use
  Company Number: None

PATIENT
  Sex: Male
  Weight: 76.4 kg

DRUGS (8)
  1. FLUDARABINE PHOSPHATE [Suspect]
     Indication: STEM CELL TRANSPLANT
     Dosage: 53MG DAILY IV DRIP
     Route: 041
     Dates: start: 20070509, end: 20070513
  2. CAMPATH [Suspect]
     Indication: STEM CELL TRANSPLANT
     Dosage: 20 MG DAILY IV DRIP
     Route: 041
     Dates: start: 20070509, end: 20070513
  3. BUSULFAN [Suspect]
     Dosage: 291X 2 DAYS 473 X 2 DAYS DAILY IV DRIP
     Route: 041
     Dates: start: 20070510, end: 20070513
  4. PORGRAF [Concomitant]
  5. ACTIGALL [Concomitant]
  6. DIFLUCAN [Concomitant]
  7. VALTREX [Concomitant]
  8. BACTRIM [Concomitant]

REACTIONS (2)
  - GAIT DISTURBANCE [None]
  - VISUAL DISTURBANCE [None]
